FAERS Safety Report 19051388 (Version 1)
Quarter: 2021Q1

REPORT INFORMATION
  Report Type: Spontaneous
  Country: JP (occurrence: JP)
  Receive Date: 20210324
  Receipt Date: 20210324
  Transmission Date: 20210420
  Serious: Yes (Hospitalization)
  Sender: FDA-Public Use
  Company Number: JP-COEPTIS PHARMACEUTICALS, INC.-COE-2021-000032

PATIENT
  Age: 92 Year
  Sex: Female

DRUGS (11)
  1. SERTRALINE [Suspect]
     Active Substance: SERTRALINE HYDROCHLORIDE
  2. VALPROIC ACID. [Suspect]
     Active Substance: VALPROIC ACID
  3. BISOPROLOL [Suspect]
     Active Substance: BISOPROLOL
  4. MAGNESIUM OXIDE. [Suspect]
     Active Substance: MAGNESIUM OXIDE
  5. VALPROIC ACID. [Suspect]
     Active Substance: VALPROIC ACID
  6. CLOPIDOGREL [Suspect]
     Active Substance: CLOPIDOGREL BISULFATE
  7. AZOSEMIDE [Suspect]
     Active Substance: AZOSEMIDE
  8. SENNOSIDE [Suspect]
     Active Substance: SENNOSIDES
  9. MIRTAZAPINE. [Suspect]
     Active Substance: MIRTAZAPINE
  10. AMLODIPINE [Suspect]
     Active Substance: AMLODIPINE BESYLATE
  11. ASPIRIN. [Suspect]
     Active Substance: ASPIRIN

REACTIONS (5)
  - Cognitive disorder [Recovering/Resolving]
  - Pneumonia aspiration [Recovering/Resolving]
  - Choking [Recovering/Resolving]
  - Multiple drug therapy [Recovering/Resolving]
  - Accidental overdose [Recovering/Resolving]
